FAERS Safety Report 4989916-5 (Version None)
Quarter: 2006Q2

REPORT INFORMATION
  Report Type: 
  Country: None (occurrence: None)
  Receive Date: 20060427
  Receipt Date: 20060411
  Transmission Date: 20061013
  Serious: Yes (Other)
  Sender: FDA-Public Use
  Company Number: 060412-0000336

PATIENT
  Age: 44 Year
  Sex: Female
  Weight: 54.4316 kg

DRUGS (5)
  1. PANHEMATIN [Suspect]
     Indication: PORPHYRIA ACUTE
     Dosage: 313 MG; Q24X5-10DAYS PRN; IV
     Route: 042
     Dates: start: 19960101, end: 20060411
  2. ESTROGENS [Concomitant]
  3. MORPHINE [Concomitant]
  4. PHENERGAN HCL [Concomitant]
  5. METHADONE HCL [Concomitant]

REACTIONS (2)
  - BLOOD IRON INCREASED [None]
  - OSTEOPOROSIS [None]
